FAERS Safety Report 9416331 (Version 1)
Quarter: 2013Q3

REPORT INFORMATION
  Report Type: Spontaneous
  Country: FR (occurrence: None)
  Receive Date: 20130719
  Receipt Date: 20130719
  Transmission Date: 20140515
  Serious: Yes (Hospitalization)
  Sender: FDA-Public Use
  Company Number: 1745061

PATIENT
  Age: 65 Year
  Sex: Male

DRUGS (15)
  1. (CARBOPLATIN) [Suspect]
     Indication: LUNG NEOPLASM MALIGNANT
     Dosage: 1 CYCLICAL
     Route: 042
     Dates: start: 20110622, end: 20110622
  2. DOCETAXEL [Suspect]
     Indication: LUNG NEOPLASM MALIGNANT
     Dosage: 1 CYCLICAL
     Route: 042
     Dates: start: 20110404, end: 20110622
  3. CISPLATIN [Concomitant]
  4. (CHLORPROMAZINE) [Concomitant]
  5. (GRANISETRON) [Concomitant]
  6. (CLORAZEPATE DIPOTASSIUM) [Concomitant]
  7. (DEXCHLORPHENIRAMINE) [Concomitant]
  8. (RANITIDINE) [Concomitant]
  9. (METHYLPREDNISOLONE) [Concomitant]
  10. (PEGFILGRASTIM) [Concomitant]
  11. (GENTAMICIN) [Concomitant]
  12. (CEFTRIAXONE) [Concomitant]
  13. (TRAMADOL) [Concomitant]
  14. (PARACETAMOL) [Concomitant]
  15. (FILGRASTIM) [Concomitant]

REACTIONS (5)
  - Febrile bone marrow aplasia [None]
  - Onycholysis [None]
  - Stomatitis [None]
  - Rash [None]
  - Febrile bone marrow aplasia [None]
